FAERS Safety Report 20853541 (Version 1)
Quarter: 2022Q2

REPORT INFORMATION
  Report Type: Spontaneous
  Country: CN (occurrence: CN)
  Receive Date: 20220520
  Receipt Date: 20220520
  Transmission Date: 20220721
  Serious: Yes (Other)
  Sender: FDA-Public Use
  Company Number: CN-PFIZER INC-202200727192

PATIENT
  Age: 75 Year
  Sex: Male
  Weight: 62 kg

DRUGS (4)
  1. ATORVASTATIN CALCIUM [Suspect]
     Active Substance: ATORVASTATIN CALCIUM
     Indication: Aortic arteriosclerosis
     Dosage: 20 MG, 1X/DAY
     Route: 045
     Dates: start: 20220423, end: 20220506
  2. OMEPRAZOLE SODIUM [Suspect]
     Active Substance: OMEPRAZOLE SODIUM
     Indication: Gastric ulcer haemorrhage
     Dosage: 40 MG, 2X/DAY
     Route: 041
     Dates: start: 20220428, end: 20220506
  3. OMEPRAZOLE SODIUM [Suspect]
     Active Substance: OMEPRAZOLE SODIUM
     Indication: Gastric ulcer
  4. SODIUM CHLORIDE [Concomitant]
     Active Substance: SODIUM CHLORIDE
     Indication: Vehicle solution use
     Dosage: 100 ML, 2X/DAY
     Route: 041
     Dates: start: 20220428, end: 20220506

REACTIONS (2)
  - Hepatic function abnormal [Recovering/Resolving]
  - Haematemesis [Unknown]

NARRATIVE: CASE EVENT DATE: 20220427
